FAERS Safety Report 24848109 (Version 1)
Quarter: 2025Q1

REPORT INFORMATION
  Report Type: Spontaneous
  Country: US (occurrence: US)
  Receive Date: 20250116
  Receipt Date: 20250116
  Transmission Date: 20250409
  Serious: No
  Sender: RICONPHARMA LLC
  Company Number: US-RICONPHARMA, LLC-2024RIC000031

PATIENT

DRUGS (1)
  1. SCOPOLAMINE [Suspect]
     Active Substance: SCOPOLAMINE
     Indication: Nausea
     Route: 062

REACTIONS (9)
  - Tremor [Unknown]
  - Brain fog [Not Recovered/Not Resolved]
  - Disorientation [Unknown]
  - Dizziness [Not Recovered/Not Resolved]
  - Heart rate increased [Unknown]
  - Hyperhidrosis [Unknown]
  - Nausea [Unknown]
  - Vision blurred [Unknown]
  - Withdrawal syndrome [Unknown]
